FAERS Safety Report 5163411-5 (Version None)
Quarter: 2006Q4

REPORT INFORMATION
  Report Type: 
  Country: None (occurrence: None)
  Receive Date: 20061204
  Receipt Date: 20061123
  Transmission Date: 20070319
  Serious: Yes (Other)
  Sender: FDA-Public Use
  Company Number: ES-JNJFOC-20061105409

PATIENT
  Age: 64 Year
  Sex: Male

DRUGS (2)
  1. REMICADE [Suspect]
     Indication: SPONDYLOARTHROPATHY
     Route: 042
  2. METHOTREXATE [Concomitant]
     Indication: SPONDYLOARTHROPATHY
     Route: 065

REACTIONS (4)
  - BLADDER CANCER [None]
  - HAEMATURIA [None]
  - MICTURITION DISORDER [None]
  - URINARY TRACT INFECTION [None]
